FAERS Safety Report 5631372-8 (Version None)
Quarter: 2008Q1

REPORT INFORMATION
  Report Type: 
  Country: None (occurrence: None)
  Receive Date: 20080212
  Receipt Date: 20080206
  Transmission Date: 20080703
  Serious: Yes (Hospitalization)
  Sender: FDA-Public Use
  Company Number: 2008SP002764

PATIENT
  Age: 66 Year
  Sex: Female

DRUGS (2)
  1. PEG-INTRON [Suspect]
     Indication: HEPATITIS C
     Dosage: SC
     Route: 058
     Dates: start: 20070929
  2. RIBAVIRIN [Suspect]
     Indication: HEPATITIS C
     Dosage: PO
     Route: 048
     Dates: start: 20070929

REACTIONS (7)
  - ASTHENIA [None]
  - DEHYDRATION [None]
  - HYPERGLYCAEMIA [None]
  - MALAISE [None]
  - MENTAL DISORDER [None]
  - PAIN IN EXTREMITY [None]
  - VOMITING [None]
